FAERS Safety Report 17855357 (Version 4)
Quarter: 2020Q2

REPORT INFORMATION
  Report Type: Spontaneous
  Country: CN (occurrence: CN)
  Receive Date: 20200603
  Receipt Date: 20200625
  Transmission Date: 20200714
  Serious: Yes (Death, Other)
  Sender: FDA-Public Use
  Company Number: CN-SA-2020SA137774

PATIENT

DRUGS (22)
  1. CELLCEPT [Concomitant]
     Active Substance: MYCOPHENOLATE MOFETIL\MYCOPHENOLATE MOFETIL HYDROCHLORIDE
     Indication: IMMUNOSUPPRESSANT DRUG THERAPY
     Dosage: UNK
     Dates: start: 20200109, end: 20200129
  2. ROCALTROL [Concomitant]
     Active Substance: CALCITRIOL
     Dosage: 1 DF, QD (WITH MEALS)
     Route: 048
  3. CANCIDAS [Concomitant]
     Active Substance: CASPOFUNGIN ACETATE
     Indication: INFECTION
  4. PROGRAF [Concomitant]
     Active Substance: TACROLIMUS
     Dosage: UNK
     Dates: start: 20200211
  5. CASPOFUNGIN ACETATE. [Concomitant]
     Active Substance: CASPOFUNGIN ACETATE
     Indication: INFECTION
  6. MEPEM [MEROPENEM] [Concomitant]
     Active Substance: MEROPENEM
     Indication: INFECTION
  7. THYMOGLOBULINE [Suspect]
     Active Substance: LAPINE T-LYMPHOCYTE IMMUNE GLOBULIN
     Indication: IMMUNOSUPPRESSANT DRUG THERAPY
     Dosage: UNK (2 BOTTLES)
     Route: 042
     Dates: start: 20200106, end: 20200106
  8. PROGRAF [Concomitant]
     Active Substance: TACROLIMUS
     Indication: IMMUNOSUPPRESSANT DRUG THERAPY
     Dosage: UNK
     Route: 065
     Dates: start: 20200109, end: 20200129
  9. MOXIFLOXACIN. [Concomitant]
     Active Substance: MOXIFLOXACIN
     Indication: INFECTION
  10. MEDROL [Concomitant]
     Active Substance: METHYLPREDNISOLONE
     Dosage: UNK
     Route: 048
     Dates: start: 20200112
  11. ALBUMIN [Concomitant]
     Active Substance: ALBUMIN HUMAN
     Indication: SYMPTOMATIC TREATMENT
  12. SULPERAZONE [Concomitant]
     Active Substance: CEFOPERAZONE SODIUM\SULBACTAM SODIUM
     Indication: INFECTION
  13. CELLCEPT [Concomitant]
     Active Substance: MYCOPHENOLATE MOFETIL\MYCOPHENOLATE MOFETIL HYDROCHLORIDE
     Dosage: 1 DF, Q12H (WITH MEALS)
     Route: 048
  14. MEDROL [Concomitant]
     Active Substance: METHYLPREDNISOLONE
     Dosage: UNK
     Route: 048
     Dates: start: 20200112
  15. THYMOGLOBULINE [Suspect]
     Active Substance: LAPINE T-LYMPHOCYTE IMMUNE GLOBULIN
     Dosage: UNK (1 BOTTLE)
     Route: 042
     Dates: start: 20200109, end: 20200109
  16. FERROUS SUCCINATE [Concomitant]
     Active Substance: FERROUS SUCCINATE
     Dosage: 1 DF, TID (WITH MEALS)
     Route: 048
  17. GANCICLOVIR. [Concomitant]
     Active Substance: GANCICLOVIR
     Indication: INFECTION
  18. DIAMMONIUM GLYCYRRHIZINATE [Concomitant]
     Active Substance: HERBALS\DIAMMONIUM GLYCYRRHIZINATE
     Dosage: 3 DF, TID (WITH MEALS)
     Route: 048
  19. IRUMED [Concomitant]
     Dosage: 1 DF, Q12H (WITH MEALS)
     Route: 048
  20. METHYLPREDNISOLONE. [Concomitant]
     Active Substance: METHYLPREDNISOLONE
     Indication: IMMUNOSUPPRESSANT DRUG THERAPY
     Dosage: UNK
     Dates: start: 20200211
  21. CALCIUM CARBONATE. [Concomitant]
     Active Substance: CALCIUM CARBONATE
     Dosage: 1 DF, BID (WITH MEALS)
     Route: 048
  22. FRUSEMIDE [FUROSEMIDE] [Concomitant]
     Active Substance: FUROSEMIDE
     Indication: SYMPTOMATIC TREATMENT

REACTIONS (32)
  - Granulocytopenia [Unknown]
  - Liver injury [Fatal]
  - Oxygen saturation decreased [Unknown]
  - Respiration abnormal [Unknown]
  - Splenomegaly [Unknown]
  - Viraemia [Unknown]
  - Blood bilirubin increased [Unknown]
  - Epilepsy [Unknown]
  - Cardiac arrest [Unknown]
  - Urine output increased [Unknown]
  - Supraventricular tachycardia [Unknown]
  - Jaundice [Unknown]
  - Gastrointestinal haemorrhage [Fatal]
  - Anal incontinence [Unknown]
  - Circulatory collapse [Unknown]
  - Cardiac failure [Unknown]
  - Productive cough [Unknown]
  - Extrasystoles [Unknown]
  - Heart rate decreased [Unknown]
  - Rales [Not Recovered/Not Resolved]
  - Sputum discoloured [Unknown]
  - Liver function test abnormal [Unknown]
  - Platelet count decreased [Fatal]
  - Urinary incontinence [Unknown]
  - Loss of consciousness [Unknown]
  - Atrial fibrillation [Unknown]
  - Cough [Unknown]
  - Pneumonia [Fatal]
  - Stress [Fatal]
  - White blood cell count decreased [Unknown]
  - Wheezing [Unknown]
  - Anaemia [Unknown]

NARRATIVE: CASE EVENT DATE: 20200126
